FAERS Safety Report 4303918-3 (Version None)
Quarter: 2004Q1

REPORT INFORMATION
  Report Type: 
  Country: None (occurrence: None)
  Receive Date: 20040225
  Receipt Date: 20040128
  Transmission Date: 20041129
  Serious: Yes (Disabling, Other)
  Sender: FDA-Public Use
  Company Number: WAES 0401GBR00260

PATIENT
  Age: 42 Year
  Sex: Female
  Weight: 76 kg

DRUGS (5)
  1. ASPIRIN [Concomitant]
     Indication: MYOCARDIAL INFARCTION
     Route: 048
     Dates: start: 19980301
  2. COZAAR [Concomitant]
     Indication: HYPERTENSION
     Route: 048
     Dates: start: 19980301, end: 19990901
  3. PROPRANOLOL HYDROCHLORIDE [Concomitant]
     Indication: HYPERTENSION
     Route: 048
     Dates: start: 19980301, end: 19990901
  4. ZOCOR [Suspect]
     Indication: HYPERCHOLESTEROLAEMIA
     Route: 048
     Dates: start: 19990701, end: 19991001
  5. ZOCOR [Suspect]
     Route: 048
     Dates: start: 19980301, end: 19980701

REACTIONS (4)
  - CARDIAC FAILURE [None]
  - LETHARGY [None]
  - MYALGIA [None]
  - PERIARTHRITIS [None]
